FAERS Safety Report 23523919 (Version 1)
Quarter: 2024Q1

REPORT INFORMATION
  Report Type: Spontaneous
  Country: CN (occurrence: CN)
  Receive Date: 20240214
  Receipt Date: 20240214
  Transmission Date: 20240410
  Serious: Yes (Hospitalization, Other)
  Sender: FDA-Public Use
  Company Number: CN-009507513-2402CHN003875

PATIENT
  Age: 58 Year
  Sex: Female

DRUGS (3)
  1. CILASTATIN SODIUM\IMIPENEM [Suspect]
     Active Substance: CILASTATIN SODIUM\IMIPENEM
     Indication: Peritonitis
     Dosage: 0.5 G, Q12H
     Route: 041
     Dates: start: 20240118, end: 20240131
  2. TIGECYCLINE [Concomitant]
     Active Substance: TIGECYCLINE
     Indication: Peritonitis
     Dosage: FIRST DOSE: 100 MG
     Route: 041
     Dates: start: 20240118, end: 20240118
  3. TIGECYCLINE [Concomitant]
     Active Substance: TIGECYCLINE
     Dosage: 50 MG, Q12H
     Route: 041
     Dates: start: 20240118, end: 20240130

REACTIONS (1)
  - Epilepsy [Recovered/Resolved]

NARRATIVE: CASE EVENT DATE: 20240131
